FAERS Safety Report 8587775-5 (Version None)
Quarter: 2012Q3

REPORT INFORMATION
  Report Type: 
  Country: None (occurrence: None)
  Receive Date: 20120813
  Receipt Date: 20120803
  Transmission Date: 20120928
  Serious: Yes (Other)
  Sender: FDA-Public Use
  Company Number: FR-BIOGENIDEC-2011BI019962

PATIENT
  Age: 41 Year
  Sex: Female

DRUGS (5)
  1. TAMSULOSIN HCL [Concomitant]
  2. VESICARE [Concomitant]
  3. TYSABRI [Suspect]
     Indication: MULTIPLE SCLEROSIS
     Route: 042
     Dates: start: 20081124, end: 20110824
  4. DEPAKENE [Concomitant]
  5. KEPPRA [Concomitant]

REACTIONS (1)
  - BASAL CELL CARCINOMA [None]
